FAERS Safety Report 5255403-2 (Version None)
Quarter: 2007Q1

REPORT INFORMATION
  Report Type: 
  Country: None (occurrence: None)
  Receive Date: 20070305
  Receipt Date: 20070222
  Transmission Date: 20070707
  Serious: Yes (Hospitalization)
  Sender: FDA-Public Use
  Company Number: US-MERCK-0702USA04205

PATIENT
  Age: 82 Year
  Sex: Female

DRUGS (6)
  1. HYDRODIURIL [Suspect]
     Route: 048
  2. ACETAMINOPHEN AND OXYCODONE HYDROCHLORIDE [Concomitant]
     Route: 065
  3. AMLODIPINE BESYLATE [Concomitant]
     Route: 065
  4. VALSARTAN [Concomitant]
     Route: 065
  5. ATORVASTATIN CALCIUM [Concomitant]
     Route: 065
  6. ALBUTEROL AND BUDESONIDE [Concomitant]
     Route: 065

REACTIONS (5)
  - ANGIOEDEMA [None]
  - BLOOD PRESSURE INCREASED [None]
  - DRUG HYPERSENSITIVITY [None]
  - GOUT [None]
  - RASH [None]
